FAERS Safety Report 5818417-7 (Version None)
Quarter: 2008Q3

REPORT INFORMATION
  Report Type: 
  Country: None (occurrence: None)
  Receive Date: 20080718
  Receipt Date: 20080715
  Transmission Date: 20090109
  Serious: Yes (Hospitalization)
  Sender: FDA-Public Use
  Company Number: 2008SP009044

PATIENT
  Age: 58 Year
  Sex: Female
  Weight: 49 kg

DRUGS (9)
  1. PEGINTRON (PEGINTERFERON ALFA-2B) (PEGINTERFERON ALFA-2B) [Suspect]
     Indication: HEPATITIS C
     Dosage: 80 MCG; QW; SC, 30 MCG; QW; SC
     Route: 058
     Dates: start: 20080317, end: 20080317
  2. PEGINTRON (PEGINTERFERON ALFA-2B) (PEGINTERFERON ALFA-2B) [Suspect]
     Indication: HEPATITIS C
     Dosage: 80 MCG; QW; SC, 30 MCG; QW; SC
     Route: 058
     Dates: start: 20080325, end: 20080428
  3. REBETOL [Suspect]
     Indication: HEPATITIS C
     Dosage: 600 MG; QD; PO
     Route: 048
     Dates: start: 20080318, end: 20080507
  4. AMLODIN QD [Concomitant]
  5. MAGLAX [Concomitant]
  6. BIOFERMIN R [Concomitant]
  7. URSO 250 [Concomitant]
  8. LIVACT [Concomitant]
  9. PARIET [Concomitant]

REACTIONS (5)
  - ABNORMAL BEHAVIOUR [None]
  - BRONCHOPNEUMONIA [None]
  - DELIRIUM [None]
  - DISORIENTATION [None]
  - MYCOPLASMA SEROLOGY POSITIVE [None]
